FAERS Safety Report 17954055 (Version 1)
Quarter: 2020Q2

REPORT INFORMATION
  Report Type: Spontaneous
  Country: US (occurrence: US)
  Receive Date: 20200629
  Receipt Date: 20200629
  Transmission Date: 20200714
  Serious: No
  Sender: FDA-Public Use
  Company Number: US-AMGEN-USASP2020101530

PATIENT
  Age: 67 Year
  Sex: Male

DRUGS (1)
  1. MVASI [Suspect]
     Active Substance: BEVACIZUMAB-AWWB
     Indication: GLIOBLASTOMA
     Dosage: 532.5 MILLIGRAM, Q2WK
     Route: 065
     Dates: start: 20200226

REACTIONS (1)
  - Adverse reaction [Unknown]
